FAERS Safety Report 10463724 (Version 2)
Quarter: 2014Q4

REPORT INFORMATION
  Report Type: Report from Study
  Country: BR (occurrence: BR)
  Receive Date: 20140919
  Receipt Date: 20141014
  Transmission Date: 20150528
  Serious: Yes (Hospitalization, Other)
  Sender: FDA-Public Use
  Company Number: PHHY2014BR121398

PATIENT
  Sex: Male
  Weight: 62 kg

DRUGS (6)
  1. EXELON PATCH [Suspect]
     Active Substance: RIVASTIGMINE
     Indication: CONFUSIONAL STATE
     Dosage: 4.6 MG (PATCH 5CM2), DAILY
     Route: 062
  2. DIOVAN HCT [Suspect]
     Active Substance: HYDROCHLOROTHIAZIDE\VALSARTAN
     Indication: HYPERTENSION
     Dosage: 1 DF (1 TABLET), QD (IN THE MORNING)
  3. ZETSIM [Concomitant]
     Active Substance: EZETIMIBE\SIMVASTATIN
     Indication: BLOOD PRESSURE ABNORMAL
     Dosage: 1 DF (1 TABLET), DAILY
  4. ZETSIM [Concomitant]
     Active Substance: EZETIMIBE\SIMVASTATIN
     Indication: DIURETIC THERAPY
  5. ZETSIM [Concomitant]
     Active Substance: EZETIMIBE\SIMVASTATIN
     Indication: ARRHYTHMIA
  6. ZETSIM [Concomitant]
     Active Substance: EZETIMIBE\SIMVASTATIN
     Indication: CARDIAC DISORDER

REACTIONS (6)
  - Parkinson^s disease [Unknown]
  - Confusional state [Not Recovered/Not Resolved]
  - Disorientation [Unknown]
  - Cerebrovascular accident [Unknown]
  - Body height decreased [Unknown]
  - Tremor [Recovering/Resolving]
